FAERS Safety Report 8139198-0 (Version None)
Quarter: 2012Q1

REPORT INFORMATION
  Report Type: 
  Country: None (occurrence: None)
  Receive Date: 20120215
  Receipt Date: 20120207
  Transmission Date: 20120608
  Serious: Yes (Other)
  Sender: FDA-Public Use
  Company Number: BR-ABBOTT-12P-020-0902699-00

PATIENT
  Sex: Female
  Weight: 73 kg

DRUGS (18)
  1. MERCAPTOPURINE [Concomitant]
     Indication: CROHN'S DISEASE
     Dosage: 2 TABLETS PER DAY
     Route: 048
     Dates: start: 20030101
  2. HUMIRA [Suspect]
     Indication: CROHN'S DISEASE
     Dosage: INDUCTION DOSE
     Route: 058
     Dates: start: 20100301
  3. CLONAZEPAM [Concomitant]
     Indication: ANXIOLYTIC THERAPY
     Route: 048
     Dates: start: 20020101
  4. NPH INSULIN [Concomitant]
     Indication: DIABETES MELLITUS
     Dosage: 46IU MORNING /10IU LUNCHTIME /34IU NIGHT
     Route: 058
  5. TARTRATE [Concomitant]
     Indication: GLAUCOMA
     Dosage: 1 DROP IN THE MORNING / 1 DROP AT NIGHT
     Route: 048
  6. ENEMA [Concomitant]
     Indication: COLITIS
  7. ALBUMIN 100% [Concomitant]
     Indication: DIABETES MELLITUS
     Dosage: 46 IU MORNING/10 IU LUNCHTIME/34IU NIGHT
     Route: 058
  8. MESALAMINE [Concomitant]
     Indication: CROHN'S DISEASE
     Route: 048
     Dates: start: 20000101
  9. CALCIUM PHOSPHATE D3 [Concomitant]
     Indication: BONE DISORDER
     Dosage: IN THE MORNING / AT NIGHT
  10. ALENDRONATE SODIUM [Concomitant]
     Indication: BONE DISORDER
     Route: 048
  11. HUMIRA [Suspect]
     Dosage: INDUCTION DOSE
     Route: 058
  12. HUMIRA [Suspect]
     Route: 058
     Dates: start: 20110901
  13. ATORVASTATIN [Concomitant]
     Indication: BLOOD CHOLESTEROL
     Route: 048
  14. REGULAR INSULIN [Concomitant]
     Indication: DIABETES MELLITUS
     Route: 058
  15. ENEMA [Concomitant]
     Indication: CROHN'S DISEASE
     Dosage: ONCE MONTHLY OR AS NEEDED ONCE DAILY
  16. CAPTOPRIL [Concomitant]
     Indication: HYPERTENSION
     Route: 048
  17. HUMIRA [Suspect]
     Route: 058
     Dates: end: 20110801
  18. MESALAMINE [Concomitant]
     Indication: COLITIS

REACTIONS (6)
  - HEADACHE [None]
  - EAR HAEMORRHAGE [None]
  - PRURITUS [None]
  - EAR PAIN [None]
  - EAR INFECTION [None]
  - DEAFNESS [None]
